FAERS Safety Report 8419369 (Version 2)
Quarter: 2012Q4

REPORT INFORMATION
  Report Type: 
  Country: CA (occurrence: CA)
  Receive Date: 20120221
  Receipt Date: 20120920
  Transmission Date: 20130627
  Serious: Yes (Other)
  Sender: FDA-Public Use
  Company Number: PHHY2011CA75202

PATIENT
  Sex: Female

DRUGS (9)
  1. GILENYA [Suspect]
     Indication: RELAPSING-REMITTING MULTIPLE SCLEROSIS
     Dosage: 0.5 mg, QD
     Route: 048
     Dates: start: 20110718
  2. SYNTHROID [Concomitant]
     Dosage: UNK UKN, QD
  3. CONCERTA [Concomitant]
     Dosage: UNK UKN, QD
  4. LAMICTAL [Concomitant]
     Dosage: UNK UKN, QD
  5. ELAVIL [Concomitant]
     Dosage: UNK UKN, QD
  6. MIRENA [Concomitant]
     Dosage: UNK UKN, QD
  7. VITAMIN D [Concomitant]
     Dosage: UNK UKN, QD
  8. TYLENOL [Concomitant]
     Dosage: UNK UKN, PRN
  9. AVENTYL [Concomitant]
     Dosage: 10 OT, QHS

REACTIONS (19)
  - Panic attack [Unknown]
  - Vision blurred [Unknown]
  - Multiple sclerosis relapse [Unknown]
  - Blepharospasm [Recovered/Resolved]
  - Muscle spasms [Recovering/Resolving]
  - Hypoaesthesia [Recovered/Resolved]
  - Fatigue [Unknown]
  - Limb discomfort [Unknown]
  - Palpitations [Unknown]
  - Fall [Unknown]
  - Urinary retention [Recovered/Resolved]
  - Vertigo [Unknown]
  - Nausea [Unknown]
  - Ocular hyperaemia [Unknown]
  - Eye disorder [Unknown]
  - Dizziness [Unknown]
  - Dyspnoea [Unknown]
  - Muscular weakness [None]
  - Drug effect decreased [None]
